FAERS Safety Report 5015301-6 (Version None)
Quarter: 2006Q2

REPORT INFORMATION
  Report Type: 
  Country: None (occurrence: None)
  Receive Date: 20060530
  Receipt Date: 20060530
  Transmission Date: 20061013
  Serious: No
  Sender: FDA-Public Use
  Company Number: None

PATIENT
  Age: 67 Year
  Sex: Female

DRUGS (1)
  1. ALDESLEUKIN [Suspect]
     Indication: METASTATIC MALIGNANT MELANOMA
     Dosage: IV
     Route: 042
     Dates: start: 20050531, end: 20050603

REACTIONS (4)
  - ATRIAL FIBRILLATION [None]
  - EJECTION FRACTION DECREASED [None]
  - HYPOTENSION [None]
  - MYOCARDIAL INFARCTION [None]
